FAERS Safety Report 13334097 (Version 3)
Quarter: 2017Q2

REPORT INFORMATION
  Report Type: Spontaneous
  Country: US (occurrence: US)
  Receive Date: 20170314
  Receipt Date: 20170607
  Transmission Date: 20170830
  Serious: Yes (Hospitalization)
  Sender: FDA-Public Use
  Company Number: US-HORIZON-RAV-0070-2017

PATIENT
  Age: 18 Month
  Sex: Male
  Weight: 11.9 kg

DRUGS (4)
  1. CYCLINEX [Concomitant]
     Indication: ARGINASE DEFICIENCY
     Dosage: 60 G DAILY
     Route: 048
     Dates: start: 20151110
  2. RAVICTI [Suspect]
     Active Substance: GLYCEROL PHENYLBUTYRATE
     Indication: ARGINASE DEFICIENCY
     Dosage: SEE NARRATIVE
     Route: 048
     Dates: start: 20161005
  3. ENFAMIL GENTLEASE [Concomitant]
     Indication: ARGINASE DEFICIENCY
     Dosage: 45 G DAILY
     Route: 048
     Dates: start: 20170104
  4. PRO-PHREE [Concomitant]
     Indication: ARGINASE DEFICIENCY
     Dosage: 50 G DAILY
     Route: 048
     Dates: start: 20151104

REACTIONS (9)
  - Lethargy [Recovered/Resolved]
  - Amino acid level increased [Recovered/Resolved]
  - Off label use [Not Recovered/Not Resolved]
  - Hyponatraemia [Recovered/Resolved]
  - Abnormal behaviour [Recovered/Resolved]
  - Decreased appetite [Recovered/Resolved]
  - Clostridium difficile colitis [Recovered/Resolved]
  - Metabolic acidosis [Recovered/Resolved]
  - Dehydration [Recovered/Resolved]

NARRATIVE: CASE EVENT DATE: 2017
